FAERS Safety Report 4917929-8 (Version None)
Quarter: 2006Q1

REPORT INFORMATION
  Report Type: 
  Country: None (occurrence: None)
  Receive Date: 20060221
  Receipt Date: 20051018
  Transmission Date: 20060701
  Serious: Yes (Hospitalization, Disabling)
  Sender: FDA-Public Use
  Company Number: US-MERCK-0510USA07631

PATIENT
  Age: 74 Year
  Sex: Male

DRUGS (1)
  1. VIOXX [Suspect]
     Route: 048
     Dates: start: 20000805, end: 20020507

REACTIONS (12)
  - CAROTID ARTERY OCCLUSION [None]
  - CEREBRAL INFARCTION [None]
  - CEREBROVASCULAR ACCIDENT [None]
  - CONJUNCTIVITIS [None]
  - EXTRASYSTOLES [None]
  - FALL [None]
  - HAEMATURIA [None]
  - IRON DEFICIENCY ANAEMIA [None]
  - MONOPARESIS [None]
  - MYOCARDIAL INFARCTION [None]
  - PARAPARESIS [None]
  - VENTRICULAR EXTRASYSTOLES [None]
